FAERS Safety Report 13536892 (Version 3)
Quarter: 2017Q3

REPORT INFORMATION
  Report Type: Spontaneous
  Country: DE (occurrence: DE)
  Receive Date: 20170511
  Receipt Date: 20170927
  Transmission Date: 20171127
  Serious: Yes (Other)
  Sender: FDA-Public Use
  Company Number: DE-NOVOPROD-544226

PATIENT
  Sex: Male
  Weight: 69 kg

DRUGS (1)
  1. GLUCAGEN HYPOKIT [Suspect]
     Active Substance: GLUCAGON HYDROCHLORIDE
     Indication: BLOOD GLUCOSE DECREASED
     Dosage: UNK
     Route: 065

REACTIONS (4)
  - Needle issue [Unknown]
  - Panic reaction [Unknown]
  - Product container seal issue [Unknown]
  - Blood glucose decreased [Unknown]
